FAERS Safety Report 8710397 (Version 3)
Quarter: 2013Q4

REPORT INFORMATION
  Report Type: Spontaneous
  Country: US (occurrence: US)
  Receive Date: 20120807
  Receipt Date: 20131101
  Transmission Date: 20140711
  Serious: No
  Sender: FDA-Public Use
  Company Number: US-009507513-1207USA009160

PATIENT
  Age: 41 Year
  Sex: Male
  Weight: 77.98 kg

DRUGS (4)
  1. VICTRELIS [Suspect]
     Dosage: 800 MG, TID
     Route: 048
  2. PEGINTRON [Suspect]
     Dosage: 150 MCG
  3. RIBAPAK [Concomitant]
     Dosage: 1200/DAY
  4. ACETAMINOPHEN [Concomitant]

REACTIONS (1)
  - Pharyngitis streptococcal [Recovered/Resolved]
